FAERS Safety Report 10296517 (Version 2)
Quarter: 2014Q3

REPORT INFORMATION
  Report Type: Spontaneous
  Country: US (occurrence: US)
  Receive Date: 20140710
  Receipt Date: 20140721
  Transmission Date: 20150326
  Serious: Yes (Other)
  Sender: FDA-Public Use
  Company Number: US-PFIZER INC-2014188291

PATIENT
  Age: 68 Year
  Sex: Female
  Weight: 71.66 kg

DRUGS (16)
  1. ARTHROTEC [Suspect]
     Active Substance: DICLOFENAC SODIUM\MISOPROSTOL
     Indication: OSTEOARTHRITIS
     Dosage: 75 MG, UNK
  2. FLEXERIL [Concomitant]
     Active Substance: CYCLOBENZAPRINE HYDROCHLORIDE
     Dosage: 10 MG, DAILY
  3. NEXIUM [Concomitant]
     Active Substance: ESOMEPRAZOLE MAGNESIUM
     Indication: GASTROOESOPHAGEAL REFLUX DISEASE
     Dosage: 20 MG, DAILY
  4. ARTHROTEC [Suspect]
     Active Substance: DICLOFENAC SODIUM\MISOPROSTOL
     Dosage: 50 MG, 2X/DAY
     Dates: end: 2014
  5. DEXILANT [Suspect]
     Active Substance: DEXLANSOPRAZOLE
     Indication: GASTROOESOPHAGEAL REFLUX DISEASE
     Dosage: 50 MG, UNK
     Dates: start: 201402, end: 2014
  6. SYNTHROID [Concomitant]
     Active Substance: LEVOTHYROXINE SODIUM
     Dosage: 25 UG, DAILY
  7. ZINC [Suspect]
     Active Substance: ZINC\ZINC CHLORIDE
     Indication: SUPPLEMENTATION THERAPY
     Dosage: UNK
     Dates: end: 2014
  8. ASPIRIN. [Concomitant]
     Active Substance: ASPIRIN
     Dosage: UNK, DAILY
  9. CALAN - SLOW RELEASE [Concomitant]
     Dosage: 240 MG, DAILY
  10. CARDURA [Concomitant]
     Active Substance: DOXAZOSIN MESYLATE
     Dosage: 3 MG, DAILY
  11. CIPROFLOXACIN. [Suspect]
     Active Substance: CIPROFLOXACIN
     Indication: OROPHARYNGEAL PAIN
     Dosage: UNK
     Dates: start: 201403, end: 2014
  12. MAXZIDE [Concomitant]
     Active Substance: HYDROCHLOROTHIAZIDE\TRIAMTERENE
     Dosage: (HALF OF THE TRIAMTERENE 75 MG / HYDROCHLOROTHIAZIDE 50 MG TABLET), DAILY
  13. LOPRESSOR [Concomitant]
     Active Substance: METOPROLOL TARTRATE
     Dosage: 100 MG, 2X/DAY
  14. ACIPHEX [Concomitant]
     Active Substance: RABEPRAZOLE SODIUM
     Indication: GASTROOESOPHAGEAL REFLUX DISEASE
     Dosage: UNK
     Dates: end: 201404
  15. TRAZODONE [Concomitant]
     Active Substance: TRAZODONE HYDROCHLORIDE
     Dosage: 100 MG, DAILY
  16. NORCO [Concomitant]
     Active Substance: ACETAMINOPHEN\HYDROCODONE BITARTRATE
     Dosage: (HYDROCODONE BITARTRATE 10 MG / PARACETAMOL 325 MG), DAILY

REACTIONS (3)
  - Off label use [Unknown]
  - Diverticulitis [Unknown]
  - Diarrhoea [Recovered/Resolved]

NARRATIVE: CASE EVENT DATE: 201403
